FAERS Safety Report 15680810 (Version 1)
Quarter: 2018Q4

REPORT INFORMATION
  Report Type: Spontaneous
  Country: US (occurrence: US)
  Receive Date: 20181202
  Receipt Date: 20181202
  Transmission Date: 20190205
  Serious: Yes (Hospitalization)
  Sender: FDA-Public Use
  Company Number: None

PATIENT
  Age: 30 Year
  Sex: Female
  Weight: 80.1 kg

DRUGS (3)
  1. PROCARDIA [Suspect]
     Active Substance: NIFEDIPINE
     Indication: HYPERTENSION
  2. BIRTHCONTROL [Concomitant]
  3. ZANTAC [Concomitant]
     Active Substance: RANITIDINE HYDROCHLORIDE

REACTIONS (5)
  - Palpitations [None]
  - Burning sensation [None]
  - Erythema [None]
  - Rash [None]
  - Phaeochromocytoma [None]

NARRATIVE: CASE EVENT DATE: 20181127
